FAERS Safety Report 8906076 (Version 2)
Quarter: 2013Q1

REPORT INFORMATION
  Report Type: Report from Study
  Country: DE (occurrence: DE)
  Receive Date: 20121109
  Receipt Date: 20130116
  Transmission Date: 20140127
  Serious: Yes (Hospitalization)
  Sender: FDA-Public Use
  Company Number: DE-ABBOTT-12P-062-0999237-00

PATIENT
  Age: 81 Year
  Sex: Male

DRUGS (8)
  1. TRENANTONE [Suspect]
     Indication: PROSTATE CANCER
     Route: 058
     Dates: start: 20111220, end: 20120430
  2. TRENANTONE [Suspect]
     Route: 058
     Dates: start: 20121001, end: 20121001
  3. ASA [Concomitant]
     Indication: PRODUCT USED FOR UNKNOWN INDICATION
  4. BETA BLOCKING AGENTS [Concomitant]
     Indication: PRODUCT USED FOR UNKNOWN INDICATION
  5. CARDIAC GLYCOSIDES [Concomitant]
     Indication: PRODUCT USED FOR UNKNOWN INDICATION
  6. HMG COA REDUCTASE INHIBITORS [Concomitant]
     Indication: PRODUCT USED FOR UNKNOWN INDICATION
  7. ORAL ANTIDIABETICS/ INSULIN (DRUG USED IN DIABETES) [Concomitant]
     Indication: PRODUCT USED FOR UNKNOWN INDICATION
  8. ACTRAPID [Concomitant]
     Indication: TYPE 2 DIABETES MELLITUS
     Dates: start: 200202

REACTIONS (2)
  - Hemiparesis [Recovering/Resolving]
  - Cerebrovascular accident [Recovering/Resolving]
